FAERS Safety Report 4698080-1 (Version None)
Quarter: 2005Q2

REPORT INFORMATION
  Report Type: 
  Country: None (occurrence: None)
  Receive Date: 20050621
  Receipt Date: 20050606
  Transmission Date: 20051028
  Serious: Yes (Hospitalization)
  Sender: FDA-Public Use
  Company Number: 8010681

PATIENT
  Sex: Male
  Weight: 64.09 kg

DRUGS (2)
  1. KEPPRA [Suspect]
     Indication: MYOCLONUS
     Dosage: 250 MG ONCE PO
     Route: 048
     Dates: start: 20050516, end: 20050516
  2. CLONIDINE [Suspect]

REACTIONS (5)
  - DYSKINESIA [None]
  - ELECTROENCEPHALOGRAM ABNORMAL [None]
  - HYPOTENSION [None]
  - NUCLEAR MAGNETIC RESONANCE IMAGING ABNORMAL [None]
  - SYNCOPE [None]
